FAERS Safety Report 7544393-5 (Version None)
Quarter: 2011Q2

REPORT INFORMATION
  Report Type: 
  Country: None (occurrence: None)
  Receive Date: 20110613
  Receipt Date: 20080516
  Transmission Date: 20111010
  Serious: Yes (Hospitalization, Other)
  Sender: FDA-Public Use
  Company Number: PHHY2008BR08306

PATIENT
  Sex: Female
  Weight: 65 kg

DRUGS (11)
  1. INSULIN [Concomitant]
     Dosage: 2 IU WHEN NECESSARY
     Route: 058
  2. CARVEDILOL [Concomitant]
     Indication: CARDIAC DISORDER
     Dosage: 625 MG, BID
     Route: 048
  3. DIGOXIN [Concomitant]
     Indication: CARDIAC DISORDER
     Dosage: 0.25 MG, QD
     Route: 048
  4. ASS ^CT-ARZNEIMITTEL^ [Concomitant]
     Indication: VASOCONSTRICTION
     Dosage: 200 MG, QD
     Route: 048
  5. TEGRETOL-XR [Suspect]
     Indication: CONVULSION
     Dosage: 400 MG, TID
     Route: 048
  6. TEGRETOL [Suspect]
     Indication: CONVULSION
  7. PLASIX [Concomitant]
     Indication: PLEURAL EFFUSION
     Dosage: 1 DF, Q12H
     Route: 048
  8. PHENOBARBITAL TAB [Concomitant]
     Indication: EPILEPSY
     Dosage: 1 DF, Q12H
     Route: 048
  9. CLONAZEPAM [Concomitant]
     Indication: CONVULSION
     Dosage: 2 MG, BID
     Route: 048
  10. INSULIN [Concomitant]
     Indication: DIABETES MELLITUS
     Dosage: 11 IU, BID
     Route: 058
  11. SUSTRATE [Concomitant]
     Indication: HYPERTENSION
     Dosage: 100 MG, BID
     Route: 048

REACTIONS (5)
  - DIABETES MELLITUS [None]
  - CARDIAC DISORDER [None]
  - MEMORY IMPAIRMENT [None]
  - CONVULSION [None]
  - PLEURAL EFFUSION [None]
